FAERS Safety Report 4835036-X (Version None)
Quarter: 2005Q4

REPORT INFORMATION
  Report Type: 
  Country: None (occurrence: None)
  Receive Date: 20051121
  Receipt Date: 20051109
  Transmission Date: 20060501
  Serious: Yes (Hospitalization)
  Sender: FDA-Public Use
  Company Number: 012027

PATIENT
  Age: 58 Year
  Sex: Female

DRUGS (17)
  1. PRIALT [Suspect]
     Indication: PAIN
     Dosage: SEE IMAGE
     Route: 037
     Dates: start: 20051018, end: 20051104
  2. PRIALT [Suspect]
     Indication: PAIN
     Dosage: SEE IMAGE
     Route: 037
     Dates: start: 20051104
  3. MORPHINE [Concomitant]
  4. BUPIVACAINE [Concomitant]
  5. KETAMINE (KETAMINE) [Concomitant]
  6. DILAUDID [Concomitant]
  7. SOMA [Concomitant]
  8. LIPITOR              /01326101/ (ATORVASTATIN) [Concomitant]
  9. DETROL              /01350201/ (TOLTERODINE) [Concomitant]
  10. LASIX             /00032601/ (FUROSEMIDE) [Concomitant]
  11. PANTOPRAZOLE SODIUM [Concomitant]
  12. SUCRALFATE [Concomitant]
  13. TRAZODONE HCL [Concomitant]
  14. .................. [Concomitant]
  15. HYDROCODONE BITARTRATE [Concomitant]
  16. ZELNORM                        /01470301/ (TEGASEROD) [Concomitant]
  17. FOLIC ACID [Concomitant]

REACTIONS (16)
  - ASTHENIA [None]
  - BREAST PAIN [None]
  - BURNING SENSATION [None]
  - CHEST PAIN [None]
  - CHILLS [None]
  - CONFUSIONAL STATE [None]
  - DEHYDRATION [None]
  - DIARRHOEA [None]
  - DIFFICULTY IN WALKING [None]
  - FEELING HOT AND COLD [None]
  - INFLUENZA LIKE ILLNESS [None]
  - MUSCLE TIGHTNESS [None]
  - NAUSEA [None]
  - PAIN [None]
  - URINARY TRACT INFECTION [None]
  - VOMITING [None]
